FAERS Safety Report 25213469 (Version 1)
Quarter: 2025Q2

REPORT INFORMATION
  Report Type: Spontaneous
  Country: ES (occurrence: ES)
  Receive Date: 20250418
  Receipt Date: 20250418
  Transmission Date: 20250717
  Serious: Yes (Hospitalization)
  Sender: TEVA
  Company Number: None

PATIENT
  Age: 91 Year
  Sex: Female
  Weight: 43.4 kg

DRUGS (2)
  1. LISINOPRIL [Suspect]
     Active Substance: LISINOPRIL
     Indication: Hypertension
     Dosage: PREVIOUSLY SINCE APRIL/2024 HE WAS PRESCRIBED LINOPRIL 20MG, BUT THEY SPLIT ? TABLET (10MG) 0-0-1...
     Route: 048
     Dates: start: 20241003, end: 20241209
  2. CEFIXIME [Concomitant]
     Active Substance: CEFIXIME
     Indication: Urinary tract infection
     Dosage: CEFIXIMA (2400A)
     Route: 048
     Dates: start: 20241122, end: 20241202

REACTIONS (3)
  - Hyperkalaemia [Recovered/Resolved]
  - Condition aggravated [Recovered/Resolved]
  - Acute kidney injury [Recovered/Resolved]

NARRATIVE: CASE EVENT DATE: 20241205
